FAERS Safety Report 6240723-5 (Version None)
Quarter: 2009Q2

REPORT INFORMATION
  Report Type: 
  Country: None (occurrence: None)
  Receive Date: 20090623
  Receipt Date: 20090223
  Transmission Date: 20091009
  Serious: No
  Sender: FDA-Public Use
  Company Number: US-ASTRAZENECA-2009UW05065

PATIENT
  Sex: Female

DRUGS (6)
  1. PULMICORT RESPULES [Suspect]
     Route: 055
     Dates: start: 20090101
  2. PREDNISONE TAB [Concomitant]
  3. ALBUTEROL [Concomitant]
  4. IPRATROPIUM BROMIDE [Concomitant]
  5. SINGULAIR [Concomitant]
  6. AMLODIPINE [Concomitant]
     Indication: HYPERTENSION

REACTIONS (2)
  - HUNGER [None]
  - WEIGHT INCREASED [None]
